FAERS Safety Report 26190345 (Version 1)
Quarter: 2025Q4

REPORT INFORMATION
  Report Type: Spontaneous
  Country: EU (occurrence: EU)
  Receive Date: 20251223
  Receipt Date: 20251223
  Transmission Date: 20260118
  Serious: Yes (Hospitalization)
  Sender: ALEXION PHARMACEUTICALS
  Company Number: EU-AUROBINDO-AUR-APL-2025-063022

PATIENT
  Age: 76 Year
  Sex: Male
  Weight: 75 kg

DRUGS (22)
  1. IMFINZI [Suspect]
     Active Substance: DURVALUMAB
     Indication: Product used for unknown indication
     Dosage: UNK (C1)
     Route: 065
     Dates: start: 20250825, end: 20250901
  2. IMFINZI [Suspect]
     Active Substance: DURVALUMAB
     Dosage: UNK (C2)
     Route: 065
     Dates: start: 20250915, end: 20250922
  3. IMFINZI [Suspect]
     Active Substance: DURVALUMAB
     Dosage: UNK (C3)
     Route: 065
     Dates: start: 20251007, end: 20251014
  4. IMFINZI [Suspect]
     Active Substance: DURVALUMAB
     Dosage: UNK (C4)
     Route: 065
     Dates: start: 20251028, end: 20251104
  5. IMFINZI [Suspect]
     Active Substance: DURVALUMAB
     Dosage: UNK (C5)
     Route: 065
  6. GEMCITABINE [Suspect]
     Active Substance: GEMCITABINE
     Indication: Product used for unknown indication
     Dosage: UNK (C1)
     Route: 065
     Dates: start: 20250825, end: 20250901
  7. GEMCITABINE [Suspect]
     Active Substance: GEMCITABINE
     Dosage: UNK (C2)
     Route: 065
     Dates: start: 20250915, end: 20250922
  8. GEMCITABINE [Suspect]
     Active Substance: GEMCITABINE
     Dosage: UNK (C3)
     Route: 065
     Dates: start: 20251007, end: 20251014
  9. GEMCITABINE [Suspect]
     Active Substance: GEMCITABINE
     Dosage: UNK (C4)
     Route: 065
     Dates: start: 20251028, end: 20251104
  10. GEMCITABINE [Suspect]
     Active Substance: GEMCITABINE
     Dosage: UNK (C4)
     Route: 065
  11. CISPLATIN [Suspect]
     Active Substance: CISPLATIN
     Indication: Product used for unknown indication
     Dosage: UNK (C1)
     Route: 065
     Dates: start: 20250825, end: 20250901
  12. CISPLATIN [Suspect]
     Active Substance: CISPLATIN
     Dosage: UNK (C2)
     Route: 065
     Dates: start: 20250915, end: 20250922
  13. CISPLATIN [Suspect]
     Active Substance: CISPLATIN
     Dosage: UNK (C3)
     Route: 065
     Dates: start: 20251007, end: 20251014
  14. CISPLATIN [Suspect]
     Active Substance: CISPLATIN
     Dosage: UNK (C4)
     Route: 065
     Dates: start: 20251028, end: 20251111
  15. CISPLATIN [Suspect]
     Active Substance: CISPLATIN
     Dosage: UNK (C5)
     Route: 065
  16. HYDROCHLOROTHIAZIDE\OLMESARTAN MEDOXOMIL [Concomitant]
     Active Substance: HYDROCHLOROTHIAZIDE\OLMESARTAN MEDOXOMIL
     Indication: Hypertension
     Dosage: 45 MILLIGRAM ( 40 MG/25 DAYS, ORAL)
     Route: 061
     Dates: start: 20250709, end: 20251124
  17. AMLODIPINE [Concomitant]
     Active Substance: AMLODIPINE BESYLATE
     Indication: Hypertension
     Dosage: 10 MILLIGRAM, QD
     Route: 061
     Dates: start: 20250709
  18. UNSPECIFIED INGREDIENT [Concomitant]
     Active Substance: UNSPECIFIED INGREDIENT
     Indication: Hypercholesterolaemia
     Dosage: 20 MILLIGRAM, QD
     Route: 061
     Dates: start: 20250709
  19. BROMAZEPAM [Concomitant]
     Active Substance: BROMAZEPAM
     Indication: Insomnia
     Dosage: UNK (8GTT)
     Route: 061
  20. METOCLOPRAMIDE HYDROCHLORIDE [Concomitant]
     Active Substance: METOCLOPRAMIDE HYDROCHLORIDE
     Indication: Nausea
     Dosage: 10 MILLIGRAM
     Route: 061
  21. NEBIVOLOL [Concomitant]
     Active Substance: NEBIVOLOL
     Indication: Hypertension
     Dosage: 5 MILLIGRAM (5 MG/DAY 1/4CP, ORAL)
     Route: 061
  22. OLMESARTAN [Concomitant]
     Active Substance: OLMESARTAN
     Indication: Hypertension
     Dosage: 40 MILLIGRAM, QD
     Route: 061
     Dates: start: 20251124

REACTIONS (3)
  - Hyperhidrosis [Recovered/Resolved]
  - Back pain [Recovered/Resolved]
  - Dizziness [Recovered/Resolved]

NARRATIVE: CASE EVENT DATE: 20251122
